FAERS Safety Report 9184590 (Version 1)
Quarter: 2013Q1

REPORT INFORMATION
  Report Type: Spontaneous
  Country: FR (occurrence: FR)
  Receive Date: 20130324
  Receipt Date: 20130324
  Transmission Date: 20140127
  Serious: Yes (Hospitalization)
  Sender: FDA-Public Use
  Company Number: FR-ELI_LILLY_AND_COMPANY-FR201303004631

PATIENT
  Sex: Male

DRUGS (5)
  1. GEMZAR [Suspect]
     Indication: BLADDER CANCER
     Dosage: UNK
     Route: 042
     Dates: end: 20121212
  2. TAHOR [Concomitant]
     Dosage: 10 MG, QD
  3. LERCAN [Concomitant]
  4. KARDEGIC [Concomitant]
     Dosage: 75 MG, QD
  5. GRANOCYTE [Concomitant]

REACTIONS (1)
  - Alveolitis [Recovering/Resolving]
